FAERS Safety Report 12072036 (Version 1)
Quarter: 2016Q1

REPORT INFORMATION
  Report Type: Spontaneous
  Country: FR (occurrence: FR)
  Receive Date: 20160212
  Receipt Date: 20160212
  Transmission Date: 20160526
  Serious: Yes (Hospitalization)
  Sender: FDA-Public Use
  Company Number: FR-ACCORD-037862

PATIENT
  Age: 53 Year
  Sex: Female
  Weight: 73 kg

DRUGS (6)
  1. PACLITAXEL/PACLITAXEL LIPOSOME [Suspect]
     Active Substance: PACLITAXEL
     Indication: OVARIAN CANCER
     Dosage: FROM 03-DEC-2015 AT 08.41 AM TO 03-DEC-2015 AT 11.09 AM
     Route: 042
     Dates: start: 20151203, end: 20151203
  2. METHYLPREDNISOLONE. [Concomitant]
     Active Substance: METHYLPREDNISOLONE
     Indication: VOMITING
     Dosage: STRENGTH: 120 MG
     Route: 042
     Dates: start: 20151203
  3. ONDANSETRON [Concomitant]
     Active Substance: ONDANSETRON
     Indication: VOMITING
     Route: 042
     Dates: start: 20151203
  4. RANIPLEX [Concomitant]
     Active Substance: RANITIDINE HYDROCHLORIDE
     Indication: PROPHYLAXIS AGAINST GASTROINTESTINAL ULCER
     Dosage: 50 MG/2ML
     Dates: start: 20151203
  5. POLARAMINE [Concomitant]
     Active Substance: DEXCHLORPHENIRAMINE MALEATE
     Indication: ALLERGY PROPHYLAXIS
     Dosage: STRENGTHT : 5 MG
     Route: 042
     Dates: start: 20151203
  6. CARBOPLATIN ACCORD [Suspect]
     Active Substance: CARBOPLATIN
     Indication: OVARIAN CANCER
     Dosage: FROM 03-DEC-2015 AT 11.41 AM TO 03-DEC-2015 AT 11.55 AM
     Route: 042
     Dates: start: 20151203, end: 20151203

REACTIONS (5)
  - Tachycardia [Recovered/Resolved]
  - Hypotension [Recovered/Resolved]
  - Hyperhidrosis [Recovered/Resolved]
  - Headache [Recovered/Resolved]
  - Malaise [Recovered/Resolved]

NARRATIVE: CASE EVENT DATE: 20151203
